FAERS Safety Report 10187200 (Version 3)
Quarter: 2014Q2

REPORT INFORMATION
  Report Type: Spontaneous
  Country: US (occurrence: US)
  Receive Date: 20140522
  Receipt Date: 20140606
  Transmission Date: 20141212
  Serious: Yes (Hospitalization, Other)
  Sender: FDA-Public Use
  Company Number: US-MALLINCKRODT-T201402240

PATIENT
  Sex: Male

DRUGS (1)
  1. GABLOFEN [Suspect]
     Indication: MUSCLE SPASTICITY
     Dosage: 110 MCG/DAY
     Route: 037

REACTIONS (7)
  - Device kink [Recovered/Resolved]
  - Overdose [Recovered/Resolved]
  - Cerebrospinal fluid leakage [Recovered/Resolved]
  - Dizziness [Recovered/Resolved]
  - Hypotonia [Recovered/Resolved]
  - Abasia [Recovered/Resolved]
  - Seroma [Recovered/Resolved]
